FAERS Safety Report 8171518-3 (Version None)
Quarter: 2012Q1

REPORT INFORMATION
  Report Type: 
  Country: None (occurrence: None)
  Receive Date: 20120104
  Receipt Date: 20111028
  Transmission Date: 20120608
  Serious: No
  Sender: FDA-Public Use
  Company Number: 2011HGS-002524

PATIENT
  Age: 40 Year
  Sex: Female
  Weight: 58.9676 kg

DRUGS (12)
  1. TEGRETOL [Concomitant]
  2. MINOCYCLINE (MINOCYCLINE) (MINOCYCLINE) [Concomitant]
  3. DOXYCYCLINE [Concomitant]
  4. BENLYSTA [Suspect]
     Indication: SYSTEMIC LUPUS ERYTHEMATOSUS
     Dosage: 10 MG/KG, INTRAVENOUS DRIP
     Route: 041
     Dates: start: 20110707
  5. MECLIZINE (MECLOZINE) (MECLOZINE) [Concomitant]
  6. PREDNISONE [Concomitant]
  7. VALACICLOVIR (VALACICLOVIR) (VALACICLOVIR) [Concomitant]
  8. GABAPENTIN [Concomitant]
  9. ASA (ACETYLSALICYLIC ACID) (ACETYLSALICYLIC ACID) [Concomitant]
  10. ENBREL [Concomitant]
  11. METHOTREXATE [Concomitant]
  12. TYLENOL (PARACETAMOL) (PARACETAMOL) [Concomitant]

REACTIONS (1)
  - STRESS [None]
